FAERS Safety Report 23520642 (Version 1)
Quarter: 2024Q1

REPORT INFORMATION
  Report Type: 
  Country: None (occurrence: None)
  Receive Date: 20240214
  Receipt Date: 20240214
  Transmission Date: 20240410
  Serious: No
  Sender: FDA-Public Use
  Company Number: US-ROCHE-3506796

PATIENT
  Weight: 45.4 kg

DRUGS (1)
  1. OCREVUS [Suspect]
     Active Substance: OCRELIZUMAB
     Dosage: DATE OF TREATMENT: 19/SEP/2023, 14/SEP/2023, 07/MAR/2023, 21/FEB/2023
     Dates: start: 20230221

REACTIONS (6)
  - Blood potassium decreased [None]
  - Muscular weakness [None]
  - Fall [None]
  - Incontinence [None]
  - Feeding disorder [None]
  - Eye disorder [None]
